FAERS Safety Report 18487688 (Version 1)
Quarter: 2020Q4

REPORT INFORMATION
  Report Type: Spontaneous
  Country: PT (occurrence: PT)
  Receive Date: 20201110
  Receipt Date: 20201110
  Transmission Date: 20210114
  Serious: Yes (Hospitalization, Other)
  Sender: FDA-Public Use
  Company Number: PT-GILEAD-2020-0502888

PATIENT
  Age: 32 Year
  Sex: Female

DRUGS (3)
  1. ATOVAQUONE. [Concomitant]
     Active Substance: ATOVAQUONE
     Dosage: 1500 MG, QD
  2. BIKTARVY [Suspect]
     Active Substance: BICTEGRAVIR SODIUM\EMTRICITABINE\TENOFOVIR ALAFENAMIDE FUMARATE
     Indication: HIV INFECTION
     Dosage: UNK
     Route: 065
     Dates: start: 20200610, end: 20200623
  3. PANTOPRAZOLE [Concomitant]
     Active Substance: PANTOPRAZOLE
     Dosage: 40 MG, BID

REACTIONS (7)
  - Drug interaction [Unknown]
  - Disseminated tuberculosis [Unknown]
  - Cholestasis [Unknown]
  - Cough [Unknown]
  - Immune reconstitution inflammatory syndrome [Unknown]
  - Granulomatous liver disease [Unknown]
  - Pyrexia [Unknown]

NARRATIVE: CASE EVENT DATE: 202006
